FAERS Safety Report 19938745 (Version 1)
Quarter: 2021Q4

REPORT INFORMATION
  Report Type: Spontaneous
  Country: FR (occurrence: FR)
  Receive Date: 20211011
  Receipt Date: 20211011
  Transmission Date: 20220304
  Serious: Yes (Death, Other)
  Sender: FDA-Public Use
  Company Number: FR-NOVARTISPH-NVSC2021FR193587

PATIENT
  Age: 82 Year
  Sex: Female
  Weight: 85 kg

DRUGS (8)
  1. FULVESTRANT [Suspect]
     Active Substance: FULVESTRANT
     Indication: Breast cancer
     Dosage: 500 MG ON DAYS 1 AND 15
     Route: 065
     Dates: start: 20191216
  2. IBRANCE [Suspect]
     Active Substance: PALBOCICLIB
     Indication: Breast cancer
     Dosage: 125 MG, QD (DAILY 3 WEEKS OUT OF 4)
     Route: 065
     Dates: start: 20191216, end: 20200309
  3. IBRANCE [Suspect]
     Active Substance: PALBOCICLIB
     Dosage: 100 MG, QD (DAILY 3 WEEKS OUT OF 4)
     Route: 065
     Dates: start: 20200518, end: 20210616
  4. METFORMIN HYDROCHLORIDE [Concomitant]
     Active Substance: METFORMIN HYDROCHLORIDE
     Indication: Type 2 diabetes mellitus
     Dosage: UNK
     Route: 048
  5. SPIRONOLACTONE [Concomitant]
     Active Substance: SPIRONOLACTONE
     Indication: Hypertension
     Dosage: UNK
     Route: 048
  6. PREVISCAN [Concomitant]
     Indication: Anticoagulant therapy
     Dosage: UNK
     Route: 048
  7. FLECAINIDE [Concomitant]
     Active Substance: FLECAINIDE
     Indication: Atrial fibrillation
     Dosage: UNK
     Route: 048
  8. FLECAINIDE [Concomitant]
     Active Substance: FLECAINIDE
     Indication: Arrhythmia

REACTIONS (2)
  - General physical health deterioration [Fatal]
  - Neutropenia [Recovered/Resolved]

NARRATIVE: CASE EVENT DATE: 20210322
